FAERS Safety Report 21189873 (Version 2)
Quarter: 2023Q1

REPORT INFORMATION
  Report Type: Spontaneous
  Country: FR (occurrence: FR)
  Receive Date: 20220809
  Receipt Date: 20230308
  Transmission Date: 20230418
  Serious: Yes (Other)
  Sender: FDA-Public Use
  Company Number: None

PATIENT
  Age: 57 Year
  Sex: Female
  Weight: 60 kg

DRUGS (1)
  1. ADALIMUMAB [Suspect]
     Active Substance: ADALIMUMAB
     Indication: SAPHO syndrome
     Dosage: UNK
     Route: 065
     Dates: start: 202011

REACTIONS (3)
  - Ocular rosacea [Unknown]
  - Psoriasis [Recovering/Resolving]
  - Palmoplantar keratoderma [Unknown]

NARRATIVE: CASE EVENT DATE: 20211201
